FAERS Safety Report 8373595-3 (Version None)
Quarter: 2012Q2

REPORT INFORMATION
  Report Type: 
  Country: None (occurrence: None)
  Receive Date: 20120521
  Receipt Date: 20120510
  Transmission Date: 20120825
  Serious: Yes (Hospitalization)
  Sender: FDA-Public Use
  Company Number: DE-VERTEX PHARMACEUTICALS INC.-000000000000000581

PATIENT
  Age: 54 Year
  Sex: Female
  Weight: 67.9 kg

DRUGS (3)
  1. RIBAVIRINE [Concomitant]
     Indication: HEPATITIS C
     Route: 048
     Dates: start: 20120129
  2. PEGINTERFERON ALFA-2A [Concomitant]
     Indication: HEPATITIS C
     Route: 058
     Dates: start: 20120129
  3. TELAPREVIR [Suspect]
     Indication: HEPATITIS C
     Dosage: DOSAGE FORM: TABLET
     Route: 048
     Dates: start: 20120129, end: 20120416

REACTIONS (1)
  - RASH [None]
